FAERS Safety Report 9327995 (Version 1)
Quarter: 2013Q2

REPORT INFORMATION
  Report Type: Spontaneous
  Country: ZA (occurrence: ZA)
  Receive Date: 20130604
  Receipt Date: 20130604
  Transmission Date: 20140414
  Serious: Yes (Hospitalization, Other)
  Sender: FDA-Public Use
  Company Number: ZA-JNJFOC-20130516728

PATIENT
  Sex: Female
  Weight: 90.72 kg

DRUGS (1)
  1. RISPERDAL [Suspect]
     Indication: VASCULAR DEMENTIA
     Route: 048
     Dates: start: 201206, end: 201210

REACTIONS (38)
  - Dysphagia [Recovered/Resolved]
  - Parkinsonism [Recovered/Resolved]
  - Visual impairment [Recovered/Resolved]
  - Urine output decreased [Recovered/Resolved]
  - Headache [Recovered/Resolved]
  - Haemorrhoids [Recovered/Resolved]
  - Pain in extremity [Recovered/Resolved]
  - Musculoskeletal pain [Recovered/Resolved]
  - Rhinitis [Recovered/Resolved]
  - Heart rate increased [Recovered/Resolved]
  - Off label use [Recovered/Resolved]
  - Eczema [Recovered/Resolved]
  - Dizziness [Recovered/Resolved]
  - Cough [Recovered/Resolved]
  - Faecal incontinence [Recovered/Resolved]
  - Dyspepsia [Recovered/Resolved]
  - Insomnia [Recovered/Resolved]
  - Somnolence [Recovered/Resolved]
  - Nausea [Recovered/Resolved]
  - Constipation [Recovered/Resolved]
  - Fatigue [Recovered/Resolved]
  - Diarrhoea [Recovered/Resolved]
  - Weight increased [Recovered/Resolved]
  - Restlessness [Recovered/Resolved]
  - Dry skin [Recovered/Resolved]
  - Dandruff [Recovered/Resolved]
  - Pruritus [Recovered/Resolved]
  - Pruritus generalised [Recovered/Resolved]
  - Vaginal discharge [Recovered/Resolved]
  - Skin discolouration [Recovered/Resolved]
  - Thirst [Recovered/Resolved]
  - Hypoaesthesia oral [Recovered/Resolved]
  - Swollen tongue [Recovered/Resolved]
  - Hyperhidrosis [Recovered/Resolved]
  - Anxiety [Recovered/Resolved]
  - Irritability [Recovered/Resolved]
  - Depression [Recovered/Resolved]
  - Feeling abnormal [Recovered/Resolved]
